FAERS Safety Report 9279284 (Version 2)
Quarter: 2013Q2

REPORT INFORMATION
  Report Type: Spontaneous
  Country: BR (occurrence: BR)
  Receive Date: 20130508
  Receipt Date: 20130523
  Transmission Date: 20140414
  Serious: Yes (Other)
  Sender: FDA-Public Use
  Company Number: BR-VERTEX PHARMACEUTICALS INC-2013-004320

PATIENT
  Age: 66 Year
  Sex: Male

DRUGS (3)
  1. INCIVO [Suspect]
     Indication: HEPATITIS C
     Dosage: UNK
     Route: 048
     Dates: start: 201302, end: 201305
  2. RIBAVIRIN [Concomitant]
     Indication: HEPATITIS C
     Dosage: DOSAGE FORM: UNKNOWN
     Route: 065
     Dates: start: 201302
  3. INTERFERON [Concomitant]
     Indication: HEPATITIS C
     Dosage: DOSAGE FORM: UNKNOWN
     Route: 065
     Dates: start: 201302

REACTIONS (7)
  - Blood triglycerides increased [Recovered/Resolved]
  - Pancreatitis [Not Recovered/Not Resolved]
  - Anaemia [Recovered/Resolved]
  - Agitation [Not Recovered/Not Resolved]
  - Tremor [Recovered/Resolved]
  - Asthenia [Unknown]
  - Pruritus [Not Recovered/Not Resolved]
